FAERS Safety Report 6031979-2 (Version None)
Quarter: 2009Q1

REPORT INFORMATION
  Report Type: 
  Country: None (occurrence: None)
  Receive Date: 20090107
  Receipt Date: 20081223
  Transmission Date: 20090719
  Serious: Yes (Other)
  Sender: FDA-Public Use
  Company Number: 1-17181207

PATIENT
  Age: 24 Year
  Sex: Female

DRUGS (3)
  1. CARBAMAZEPINE [Suspect]
     Indication: EPILEPSY
     Dosage: 2100 MG, DAILY, ORAL
     Route: 048
  2. PHENYTOIN [Concomitant]
  3. VALPROIC ACID [Concomitant]

REACTIONS (8)
  - ATAXIA [None]
  - DEPRESSED LEVEL OF CONSCIOUSNESS [None]
  - GAIT DISTURBANCE [None]
  - HEADACHE [None]
  - HEMIPARESIS [None]
  - NAUSEA [None]
  - OCULOGYRIC CRISIS [None]
  - VOMITING [None]
